FAERS Safety Report 23846958 (Version 2)
Quarter: 2024Q2

REPORT INFORMATION
  Report Type: Spontaneous
  Country: IT (occurrence: IT)
  Receive Date: 20240513
  Receipt Date: 20240611
  Transmission Date: 20240716
  Serious: Yes (Hospitalization, Other)
  Sender: FDA-Public Use
  Company Number: IT-009507513-2405ITA001659

PATIENT
  Age: 69 Year
  Sex: Male

DRUGS (3)
  1. PACLITAXEL [Suspect]
     Active Substance: PACLITAXEL
     Indication: Squamous cell carcinoma of lung
     Dosage: UNK
     Dates: start: 202311
  2. CARBOPLATIN [Suspect]
     Active Substance: CARBOPLATIN
     Indication: Squamous cell carcinoma of lung
     Dosage: UNK
     Dates: start: 202311
  3. PEMBROLIZUMAB [Suspect]
     Active Substance: PEMBROLIZUMAB
     Indication: Squamous cell carcinoma of lung
     Dosage: UNK
     Dates: start: 202311

REACTIONS (11)
  - Thrombocytopenia [Not Recovered/Not Resolved]
  - Skin toxicity [Recovered/Resolved]
  - Liver scan abnormal [Unknown]
  - Gamma-glutamyltransferase increased [Not Recovered/Not Resolved]
  - Transaminases increased [Not Recovered/Not Resolved]
  - Malignant neoplasm progression [Unknown]
  - Hepatotoxicity [Not Recovered/Not Resolved]
  - Diarrhoea [Recovered/Resolved]
  - Coagulopathy [Unknown]
  - Hepatic failure [Unknown]
  - Neuroendocrine carcinoma [Unknown]

NARRATIVE: CASE EVENT DATE: 20240101
